FAERS Safety Report 20070688 (Version 1)
Quarter: 2021Q4

REPORT INFORMATION
  Report Type: Spontaneous
  Country: US (occurrence: None)
  Receive Date: 20211115
  Receipt Date: 20211115
  Transmission Date: 20220303
  Serious: No
  Sender: FDA-Public Use
  Company Number: None

PATIENT
  Age: 60 Year
  Sex: Male
  Weight: 66 kg

DRUGS (1)
  1. CASIRIVIMAB\IMDEVIMAB [Suspect]
     Active Substance: CASIRIVIMAB\IMDEVIMAB
     Indication: COVID-19
     Dates: start: 20211112, end: 20211112

REACTIONS (6)
  - Dizziness [None]
  - Erythema [None]
  - Tachycardia [None]
  - Dysarthria [None]
  - Chills [None]
  - Presyncope [None]

NARRATIVE: CASE EVENT DATE: 20211112
